FAERS Safety Report 24647153 (Version 1)
Quarter: 2024Q4

REPORT INFORMATION
  Report Type: Spontaneous
  Country: US (occurrence: US)
  Receive Date: 20241121
  Receipt Date: 20241121
  Transmission Date: 20250115
  Serious: Yes (Hospitalization, Other)
  Sender: NOVARTIS
  Company Number: US-002147023-NVSC2024US118193

PATIENT
  Age: 22 Year
  Sex: Female

DRUGS (1)
  1. FABHALTA [Suspect]
     Active Substance: IPTACOPAN HYDROCHLORIDE
     Indication: Paroxysmal nocturnal haemoglobinuria
     Dosage: 200 MG, BID
     Route: 048
     Dates: start: 20240518

REACTIONS (8)
  - Headache [Recovered/Resolved]
  - Dyspnoea [Recovered/Resolved]
  - Fatigue [Recovered/Resolved]
  - Platelet count decreased [Unknown]
  - Heavy menstrual bleeding [Unknown]
  - Abdominal distension [Unknown]
  - Abdominal pain upper [Unknown]
  - Flatulence [Unknown]

NARRATIVE: CASE EVENT DATE: 20240722
